FAERS Safety Report 9710576 (Version 1)
Quarter: 2013Q4

REPORT INFORMATION
  Report Type: Spontaneous
  Country: US (occurrence: US)
  Receive Date: 20131126
  Receipt Date: 20131126
  Transmission Date: 20140711
  Serious: No
  Sender: FDA-Public Use
  Company Number: US-BRISTOL-MYERS SQUIBB COMPANY-18910091

PATIENT
  Age: 78 Year
  Sex: Female
  Weight: 85.26 kg

DRUGS (1)
  1. BYETTA [Suspect]
     Dosage: NO OF INJ:9

REACTIONS (2)
  - Gastric disorder [Unknown]
  - Nausea [Unknown]
